FAERS Safety Report 16445986 (Version 1)
Quarter: 2019Q2

REPORT INFORMATION
  Report Type: Spontaneous
  Country: US (occurrence: US)
  Receive Date: 20190618
  Receipt Date: 20190618
  Transmission Date: 20190711
  Serious: No
  Sender: FDA-Public Use
  Company Number: US-009507513-1906USA004720

PATIENT
  Sex: Female
  Weight: 83.91 kg

DRUGS (5)
  1. ZOCOR [Suspect]
     Active Substance: SIMVASTATIN
     Dosage: 40 UNK
     Route: 048
  2. ZOCOR [Suspect]
     Active Substance: SIMVASTATIN
     Dosage: 20 UNK
     Route: 048
  3. PRAVASTATIN. [Suspect]
     Active Substance: PRAVASTATIN
     Indication: BLOOD CHOLESTEROL INCREASED
     Dosage: 10 MILLIGRAM, QD
     Route: 048
  4. METOPROLOL. [Concomitant]
     Active Substance: METOPROLOL
     Indication: BLOOD PRESSURE INCREASED
     Dosage: 25 MICROGRAM, QD
     Route: 048
  5. ZOCOR [Suspect]
     Active Substance: SIMVASTATIN
     Indication: BLOOD CHOLESTEROL INCREASED
     Dosage: 10 MICROGRAM, QD
     Route: 048

REACTIONS (3)
  - Dizziness [Recovered/Resolved]
  - Nausea [Recovered/Resolved]
  - Drug ineffective [Unknown]
